FAERS Safety Report 9467716 (Version 1)
Quarter: 2013Q3

REPORT INFORMATION
  Report Type: Report from Study
  Country: LB (occurrence: LB)
  Receive Date: 20130821
  Receipt Date: 20130821
  Transmission Date: 20140515
  Serious: Yes (Hospitalization)
  Sender: FDA-Public Use
  Company Number: LB-SANOFI-AVENTIS-2013SA082256

PATIENT
  Age: 72 Year
  Sex: Female

DRUGS (11)
  1. LANTUS SOLOSTAR [Suspect]
     Indication: DIABETES MELLITUS
     Dosage: DOSE:32 UNIT(S)
     Route: 058
     Dates: start: 2012
  2. SOLOSTAR [Concomitant]
     Indication: DEVICE THERAPY
     Dates: start: 2012
  3. APIDRA [Concomitant]
     Indication: DIABETES MELLITUS
     Dosage: DOSE:12 UNIT(S)
     Route: 048
  4. DIAMICRON [Concomitant]
     Indication: DIABETES MELLITUS
     Route: 048
  5. DISCOTRINE [Concomitant]
     Dosage: PATCH
  6. CIPRALEX [Concomitant]
     Route: 048
  7. TRITACE [Concomitant]
     Route: 048
  8. LIPITOR [Concomitant]
     Route: 048
  9. EPANUTIN [Concomitant]
     Route: 048
  10. LASIX [Concomitant]
     Route: 048
  11. EBIXA [Concomitant]
     Route: 048

REACTIONS (2)
  - Hepatic cirrhosis [Unknown]
  - Abdominal distension [Unknown]
